FAERS Safety Report 20853781 (Version 1)
Quarter: 2022Q2

REPORT INFORMATION
  Report Type: Spontaneous
  Country: DE (occurrence: None)
  Receive Date: 20220520
  Receipt Date: 20220520
  Transmission Date: 20220721
  Serious: Yes (Other)
  Sender: FDA-Public Use
  Company Number: DE-ROCHE-3100989

PATIENT
  Sex: Female
  Weight: 79 kg

DRUGS (11)
  1. OBINUTUZUMAB [Suspect]
     Active Substance: OBINUTUZUMAB
     Indication: Diffuse large B-cell lymphoma
     Dosage: 3RD LINE THERAPY, TOGETHER WITH X-RAY THERAPY
     Route: 065
     Dates: start: 201811, end: 201901
  2. MABTHERA [Suspect]
     Active Substance: RITUXIMAB
     Indication: Diffuse large B-cell lymphoma
     Dosage: 1ST LINE THERAPY, ACCORDING TO R-CHOP REGIMEN, 6 CYCLES
     Route: 042
     Dates: start: 201708, end: 201712
  3. CYCLOPHOSPHAMIDE\DOXORUBICIN\PREDNISONE\VINCRISTINE [Suspect]
     Active Substance: CYCLOPHOSPHAMIDE\DOXORUBICIN\PREDNISONE\VINCRISTINE
     Indication: Diffuse large B-cell lymphoma
     Dosage: 1ST LINE THERAPY, ACCORDING TO R-CHOP REGIMEN, 6 CYCLES
     Route: 065
     Dates: start: 201708, end: 201712
  4. CISPLATIN\CYTARABINE\DEXAMETHASONE [Suspect]
     Active Substance: CISPLATIN\CYTARABINE\DEXAMETHASONE
     Indication: Diffuse large B-cell lymphoma
     Dosage: 2ND LINE THERAPY, ACCORDING TO DHAP REGIMEN, 1 CYCLE
     Route: 065
     Dates: start: 201808
  5. IPILIMUMAB [Suspect]
     Active Substance: IPILIMUMAB
     Indication: Diffuse large B-cell lymphoma
     Dosage: IPILIMUMAB TOGETHER WITH NIVOLUMAB
     Route: 065
     Dates: start: 201906, end: 201907
  6. NIVOLUMAB [Suspect]
     Active Substance: NIVOLUMAB
     Indication: Diffuse large B-cell lymphoma
     Dosage: IPILIMUMAB TOGETHER WITH NIVOLUMAB
     Route: 065
     Dates: start: 201906, end: 201907
  7. COTRIM [Concomitant]
     Active Substance: SULFAMETHOXAZOLE\TRIMETHOPRIM
     Indication: Pneumonia
     Route: 048
  8. VALTREX [Concomitant]
     Active Substance: VALACYCLOVIR HYDROCHLORIDE
     Indication: Herpes simplex
     Route: 048
  9. CANDESARTAN [Concomitant]
     Active Substance: CANDESARTAN
     Indication: Blood pressure measurement
     Route: 048
  10. PANTOZOL [Concomitant]
     Active Substance: PANTOPRAZOLE SODIUM
     Indication: Prophylaxis
     Route: 048
  11. METOPROLOL [Concomitant]
     Active Substance: METOPROLOL
     Indication: Blood pressure measurement
     Route: 048

REACTIONS (2)
  - Renal failure [Recovered/Resolved]
  - Off label use [Unknown]
